FAERS Safety Report 12067482 (Version 2)
Quarter: 2016Q2

REPORT INFORMATION
  Report Type: Spontaneous
  Country: IT (occurrence: IT)
  Receive Date: 20160210
  Receipt Date: 20160608
  Transmission Date: 20160815
  Serious: Yes (Life-Threatening)
  Sender: FDA-Public Use
  Company Number: IT-ROCHE-1708791

PATIENT
  Age: 55 Year
  Sex: Female

DRUGS (3)
  1. PACLITAXEL. [Concomitant]
     Active Substance: PACLITAXEL
     Indication: BREAST CANCER METASTATIC
     Route: 042
     Dates: start: 20150909, end: 20160130
  2. HERCEPTIN [Suspect]
     Active Substance: TRASTUZUMAB
     Indication: BREAST CANCER METASTATIC
     Dosage: 150 MG-1 VIAL
     Route: 042
     Dates: start: 20151105, end: 20151105
  3. PERJETA [Concomitant]
     Active Substance: PERTUZUMAB
     Indication: BREAST CANCER METASTATIC
     Dosage: 420 MG -VIAL (GLASS) 30 MG/ML - 1 VIAL
     Route: 042
     Dates: start: 20151105, end: 20160130

REACTIONS (5)
  - Tachycardia [Recovered/Resolved]
  - Malaise [Recovered/Resolved]
  - Hypertensive crisis [Recovered/Resolved]
  - Chills [Recovered/Resolved]
  - Vomiting [Recovered/Resolved]

NARRATIVE: CASE EVENT DATE: 20151105
